FAERS Safety Report 21907619 (Version 1)
Quarter: 2023Q1

REPORT INFORMATION
  Report Type: Spontaneous
  Country: JP (occurrence: JP)
  Receive Date: 20230125
  Receipt Date: 20230125
  Transmission Date: 20230417
  Serious: Yes (Hospitalization, Other)
  Sender: FDA-Public Use
  Company Number: JP-ASTELLAS-2022JP011266

PATIENT
  Age: 33 Year
  Sex: Female
  Weight: 48.4 kg

DRUGS (15)
  1. PROGRAF [Suspect]
     Active Substance: TACROLIMUS
     Indication: Systemic lupus erythematosus
     Dosage: 3 MG/DAY, UNKNOWN FREQ.
     Route: 048
  2. PREDNISOLONE [Suspect]
     Active Substance: PREDNISOLONE
     Indication: Systemic lupus erythematosus
     Dosage: 45 MG/DAY, UNKNOWN FREQ.
     Route: 048
  3. PREDNISOLONE [Suspect]
     Active Substance: PREDNISOLONE
     Dosage: UNK UNK, UNKNOWN FREQ.
     Route: 048
  4. PREDNISOLONE [Suspect]
     Active Substance: PREDNISOLONE
     Dosage: 17 MG/DAY, UNKNOWN FREQ.
     Route: 048
  5. PREDNISOLONE [Suspect]
     Active Substance: PREDNISOLONE
     Dosage: 12.5 MG/DAY, UNKNOWN FREQ.
     Route: 048
  6. PREDNISOLONE [Suspect]
     Active Substance: PREDNISOLONE
     Dosage: 15 MG/DAY, UNKNOWN FREQ.
     Route: 048
  7. PREDNISOLONE [Suspect]
     Active Substance: PREDNISOLONE
     Dosage: 20 MG/DAY, UNKNOWN FREQ.
     Route: 048
  8. PREDNISOLONE [Suspect]
     Active Substance: PREDNISOLONE
     Dosage: 40 MG/DAY, UNKNOWN FREQ.
     Route: 048
  9. HYDROXYCHLOROQUINE SULFATE [Concomitant]
     Active Substance: HYDROXYCHLOROQUINE SULFATE
     Indication: Systemic lupus erythematosus
     Dosage: 200 MG/DAY, UNKNOWN FREQ.
     Route: 048
  10. BETAMETHASONE [Concomitant]
     Active Substance: BETAMETHASONE
     Indication: Systemic lupus erythematosus
     Dosage: 1.75 MG/DAY, UNKNOWN FREQ.
     Route: 048
  11. BETAMETHASONE [Concomitant]
     Active Substance: BETAMETHASONE
     Route: 048
  12. BETAMETHASONE [Concomitant]
     Active Substance: BETAMETHASONE
     Route: 048
  13. BETAMETHASONE [Concomitant]
     Active Substance: BETAMETHASONE
     Dosage: 1.25 MG/DAY, UNKNOWN FREQ.
     Route: 048
  14. ALFACALCIDOL [Concomitant]
     Active Substance: ALFACALCIDOL
     Indication: Osteoporosis
     Dosage: 0.5 UG/DAY, UNKNOWN FREQ.
     Route: 048
  15. HEPARIN CALCIUM [Concomitant]
     Active Substance: HEPARIN CALCIUM
     Indication: Antiphospholipid syndrome
     Dosage: 10000 IU/DAY, UNKNOWN FREQ.
     Route: 058

REACTIONS (2)
  - Spinal compression fracture [Recovered/Resolved]
  - Off label use [Unknown]
